FAERS Safety Report 20584400 (Version 1)
Quarter: 2022Q1

REPORT INFORMATION
  Report Type: Report from Study
  Country: US (occurrence: US)
  Receive Date: 20220311
  Receipt Date: 20220311
  Transmission Date: 20220423
  Serious: Yes (Hospitalization)
  Sender: FDA-Public Use
  Company Number: US-GILEAD-2022-0573245

PATIENT
  Age: 83 Year
  Sex: Female

DRUGS (2)
  1. IDELALISIB [Suspect]
     Active Substance: IDELALISIB
     Indication: Non-Hodgkin^s lymphoma
     Dosage: 100 MG, QD
     Route: 048
     Dates: start: 201904
  2. RITUXAN [Concomitant]
     Active Substance: RITUXIMAB
     Dosage: 700 MG EVERY OTHER MONTH
     Route: 042
     Dates: start: 202108

REACTIONS (1)
  - COVID-19 [Unknown]

NARRATIVE: CASE EVENT DATE: 20220201
